FAERS Safety Report 13009095 (Version 7)
Quarter: 2019Q1

REPORT INFORMATION
  Report Type: Spontaneous
  Country: US (occurrence: US)
  Receive Date: 20161208
  Receipt Date: 20190219
  Transmission Date: 20190417
  Serious: Yes (Hospitalization, Other)
  Sender: FDA-Public Use
  Company Number: US-ACTELION-A-US2016-146662

PATIENT
  Age: 77 Year
  Sex: Female
  Weight: 91.16 kg

DRUGS (5)
  1. UPTRAVI [Suspect]
     Active Substance: SELEXIPAG
     Dosage: 1600 MCG, BID
     Route: 048
     Dates: start: 20160603
  2. ELIQUIS [Concomitant]
     Active Substance: APIXABAN
  3. UPTRAVI [Suspect]
     Active Substance: SELEXIPAG
     Dosage: 1200 MCG, BID
     Route: 048
  4. LETAIRIS [Concomitant]
     Active Substance: AMBRISENTAN
  5. UPTRAVI [Suspect]
     Active Substance: SELEXIPAG
     Indication: PULMONARY ARTERIAL HYPERTENSION
     Dosage: 600 MCG, BID
     Route: 048
     Dates: start: 2016

REACTIONS (10)
  - Dyspnoea [Unknown]
  - Spinal fracture [Unknown]
  - Ear discomfort [Unknown]
  - Nasal congestion [Unknown]
  - Rash [Unknown]
  - Weight decreased [Unknown]
  - Hospitalisation [Unknown]
  - Upper limb fracture [Unknown]
  - Flushing [Unknown]
  - Insomnia [Unknown]
